FAERS Safety Report 5850006-0 (Version None)
Quarter: 2008Q3

REPORT INFORMATION
  Report Type: 
  Country: None (occurrence: None)
  Receive Date: 20080819
  Receipt Date: 20080813
  Transmission Date: 20090109
  Serious: Yes (Other)
  Sender: FDA-Public Use
  Company Number: US-ABBOTT-08P-163-0470428-00

PATIENT
  Age: 66 Year
  Sex: Male

DRUGS (1)
  1. NIASPAN [Suspect]
     Indication: BLOOD CHOLESTEROL INCREASED
     Dosage: 2000 MG DAILY
     Route: 048
     Dates: start: 20010101

REACTIONS (2)
  - FLUSHING [None]
  - PROSTATE CANCER [None]
